FAERS Safety Report 18287671 (Version 4)
Quarter: 2021Q3

REPORT INFORMATION
  Report Type: Spontaneous
  Country: US (occurrence: US)
  Receive Date: 20200921
  Receipt Date: 20210810
  Transmission Date: 20211014
  Serious: Yes (Death, Other)
  Sender: FDA-Public Use
  Company Number: US-SA-2020SA253813

PATIENT
  Sex: Female

DRUGS (13)
  1. FERROUS SULPHATE [FERROUS SULFATE] [Concomitant]
     Active Substance: FERROUS SULFATE
     Dosage: 325 MG, QD
     Route: 048
  2. RANITIDINE HYDROCHLORIDE. [Suspect]
     Active Substance: RANITIDINE HYDROCHLORIDE
     Indication: GASTROOESOPHAGEAL REFLUX DISEASE
     Dosage: UNK
     Dates: start: 2008, end: 2015
  3. ZANAFLEX [Concomitant]
     Active Substance: TIZANIDINE HYDROCHLORIDE
     Dosage: 4 MG, QD
     Route: 048
  4. ZOCOR [Concomitant]
     Active Substance: SIMVASTATIN
     Dosage: 80 MG, QD
     Route: 048
  5. VITAMINS NOS [Concomitant]
     Active Substance: VITAMINS
     Dosage: 1 DF, QD
     Route: 048
  6. MECLIZINE [Concomitant]
     Active Substance: MECLIZINE HYDROCHLORIDE
     Dosage: 25 MG, QD
     Route: 048
  7. GABAPENTIN. [Concomitant]
     Active Substance: GABAPENTIN
     Dosage: 300 MG, HS
     Route: 048
  8. MOBIC [Concomitant]
     Active Substance: MELOXICAM
     Dosage: 7.5 MG, QD
     Route: 048
  9. METAMUCIL CITRON [Concomitant]
     Active Substance: HERBALS\PLANTAGO OVATA SEED\PLANTAGO SEED
     Dosage: 0.52Q, QD
     Route: 048
  10. OS CAL [CALCIUM CARBONATE] [Concomitant]
     Dosage: 2 DF, QD
     Route: 048
  11. ZANTAC [Suspect]
     Active Substance: RANITIDINE HYDROCHLORIDE
     Indication: GASTROOESOPHAGEAL REFLUX DISEASE
     Dosage: 150 MG, BID
     Route: 048
     Dates: start: 2008, end: 2018
  12. CALCIUM POLYCARBOPHIL. [Concomitant]
     Active Substance: CALCIUM POLYCARBOPHIL
     Dosage: 625 MG, QD
     Route: 048
  13. VITAMIN B COMPLEX [Concomitant]
     Active Substance: CYANOCOBALAMIN\DEXPANTHENOL\NIACINAMIDE\PYRIDOXINE HYDROCHLORIDE\RIBOFLAVIN 5^-PHOSPHATE SODIUM\THIAMINE HYDROCHLORIDE\VITAMIN B COMPLEX
     Dosage: 1 DF, QD
     Route: 048

REACTIONS (7)
  - Pain [Unknown]
  - Emotional distress [Unknown]
  - Colon cancer [Fatal]
  - Colorectal cancer [Fatal]
  - Mixed hepatocellular cholangiocarcinoma [Fatal]
  - Anxiety [Unknown]
  - Weight decreased [Unknown]

NARRATIVE: CASE EVENT DATE: 201502
